FAERS Safety Report 17061657 (Version 1)
Quarter: 2019Q4

REPORT INFORMATION
  Report Type: Spontaneous
  Country: PT (occurrence: PT)
  Receive Date: 20191121
  Receipt Date: 20191121
  Transmission Date: 20200122
  Serious: Yes (Other)
  Sender: FDA-Public Use
  Company Number: PT-MYLANLABS-2019M1112439

PATIENT
  Age: 66 Year
  Sex: Female

DRUGS (1)
  1. PREGABALIN. [Suspect]
     Active Substance: PREGABALIN
     Indication: NEURALGIA
     Dosage: 14 DIAS 25 MG 1XDIA; 14 DIAS 75 MG 1XDIA; 14 DIAS 150MG 1XDIA
     Route: 048
     Dates: start: 20190428, end: 201906

REACTIONS (3)
  - Dermatitis bullous [Recovering/Resolving]
  - Thermal burn [Recovering/Resolving]
  - Rash papular [Recovering/Resolving]

NARRATIVE: CASE EVENT DATE: 20190520
